FAERS Safety Report 4273628-X (Version None)
Quarter: 2004Q1

REPORT INFORMATION
  Report Type: 
  Country: None (occurrence: None)
  Receive Date: 20040119
  Receipt Date: 20031215
  Transmission Date: 20041129
  Serious: Yes (Death, Life-Threatening)
  Sender: FDA-Public Use
  Company Number: WAES 0312BEL00026

PATIENT
  Age: 36 Year
  Sex: Male
  Weight: 66 kg

DRUGS (7)
  1. ABELCET [Concomitant]
     Indication: FUNGAL INFECTION
     Route: 041
     Dates: start: 20030407, end: 20030415
  2. CANCIDAS [Suspect]
     Indication: RESPIRATORY TRACT INFECTION FUNGAL
     Route: 041
     Dates: start: 20030416, end: 20030503
  3. CYCLOSPORINE [Concomitant]
     Indication: PROPHYLAXIS AGAINST TRANSPLANT REJECTION
  4. GANCICLOVIR [Concomitant]
     Indication: PNEUMONIA CYTOMEGALOVIRAL
  5. ITRACONAZOLE [Concomitant]
     Indication: ANTIFUNGAL PROPHYLAXIS
     Route: 048
     Dates: start: 20030203, end: 20030406
  6. SOLU-MEDROL [Concomitant]
     Indication: GRAFT VERSUS HOST DISEASE
     Route: 041
  7. VORICONAZOLE [Concomitant]
     Indication: FUNGAL INFECTION
     Route: 048
     Dates: start: 20030417, end: 20030506

REACTIONS (1)
  - PNEUMONIA CYTOMEGALOVIRAL [None]
